FAERS Safety Report 12228019 (Version 2)
Quarter: 2016Q2

REPORT INFORMATION
  Report Type: Report from Study
  Country: US (occurrence: US)
  Receive Date: 20160401
  Receipt Date: 20160505
  Transmission Date: 20160815
  Serious: Yes (Other)
  Sender: FDA-Public Use
  Company Number: US-AMGEN-USASL2016038216

PATIENT
  Age: 60 Year
  Sex: Female

DRUGS (2)
  1. ENBREL [Suspect]
     Active Substance: ETANERCEPT
     Indication: RHEUMATOID ARTHRITIS
     Dosage: 50 MG, QWK
     Route: 065
     Dates: start: 20151215, end: 20160322
  2. ALBUTEROL                          /00139501/ [Suspect]
     Active Substance: ALBUTEROL
     Indication: BRONCHITIS
     Dosage: UNK
     Route: 065

REACTIONS (14)
  - Drug effect decreased [Unknown]
  - Injection site bruising [Unknown]
  - Bronchitis [Unknown]
  - Injection site haemorrhage [Unknown]
  - Device difficult to use [Unknown]
  - Peripheral swelling [Not Recovered/Not Resolved]
  - Musculoskeletal pain [Unknown]
  - Fall [Unknown]
  - Pain in extremity [Not Recovered/Not Resolved]
  - Nasopharyngitis [Unknown]
  - Joint swelling [Not Recovered/Not Resolved]
  - Arthralgia [Not Recovered/Not Resolved]
  - Heart rate increased [Unknown]
  - Nasal dryness [Unknown]

NARRATIVE: CASE EVENT DATE: 2016
